FAERS Safety Report 12444255 (Version 1)
Quarter: 2016Q2

REPORT INFORMATION
  Report Type: Spontaneous
  Country: US (occurrence: US)
  Receive Date: 20160607
  Receipt Date: 20160607
  Transmission Date: 20160815
  Serious: No
  Sender: FDA-Public Use
  Company Number: US-SA-2016SA091130

PATIENT
  Age: 77 Year
  Sex: Male

DRUGS (4)
  1. LANTUS [Concomitant]
     Active Substance: INSULIN GLARGINE
     Dosage: VIAL
  2. HUMALOG [Concomitant]
     Active Substance: INSULIN LISPRO
  3. SOLOSTAR [Concomitant]
     Active Substance: DEVICE
     Dates: start: 2015
  4. TOUJEO [Suspect]
     Active Substance: INSULIN GLARGINE
     Indication: TYPE 1 DIABETES MELLITUS
     Dosage: DOSE:20 UNIT(S)
     Route: 065
     Dates: start: 2015

REACTIONS (2)
  - Drug ineffective [Unknown]
  - Blood glucose increased [Not Recovered/Not Resolved]
